FAERS Safety Report 4684356-0 (Version None)
Quarter: 2005Q2

REPORT INFORMATION
  Report Type: 
  Country: None (occurrence: None)
  Receive Date: 20050531
  Receipt Date: 20041020
  Transmission Date: 20051028
  Serious: Yes (Hospitalization)
  Sender: FDA-Public Use
  Company Number: 200416458US

PATIENT
  Age: 67 Year
  Sex: Female

DRUGS (6)
  1. LOVENOX [Suspect]
     Indication: HIP SURGERY
     Dosage: 30 MG BID SC; 50 MG BID SC
     Route: 058
     Dates: end: 20040823
  2. LOVENOX [Suspect]
     Indication: THROMBOSIS PROPHYLAXIS
     Dosage: 30 MG BID SC; 50 MG BID SC
     Route: 058
     Dates: end: 20040823
  3. LOVENOX [Suspect]
     Indication: HIP SURGERY
     Dosage: 30 MG BID SC; 50 MG BID SC
     Route: 058
     Dates: start: 20040724
  4. LOVENOX [Suspect]
     Indication: THROMBOSIS PROPHYLAXIS
     Dosage: 30 MG BID SC; 50 MG BID SC
     Route: 058
     Dates: start: 20040724
  5. . [Concomitant]
  6. ASPIRIN [Concomitant]

REACTIONS (1)
  - HAEMATOMA [None]
